FAERS Safety Report 9705646 (Version 1)
Quarter: 2013Q4

REPORT INFORMATION
  Report Type: Spontaneous
  Country: US (occurrence: US)
  Receive Date: 20131122
  Receipt Date: 20131122
  Transmission Date: 20140711
  Serious: Yes (Hospitalization, Other)
  Sender: FDA-Public Use
  Company Number: US-GILEAD-2008-0017456

PATIENT
  Sex: Female
  Weight: 63.5 kg

DRUGS (15)
  1. LETAIRIS [Suspect]
     Indication: PULMONARY HYPERTENSION
     Route: 048
     Dates: start: 20071006, end: 20080716
  2. VENTAVIS [Concomitant]
     Route: 055
  3. COUMADIN [Concomitant]
     Route: 048
  4. LASIX [Concomitant]
     Route: 048
  5. PRAVACHOL [Concomitant]
     Route: 048
  6. AMBIEN [Concomitant]
     Route: 048
  7. PRILOSEC [Concomitant]
     Route: 048
  8. SYNTHROID [Concomitant]
     Route: 048
  9. ZOLOFT [Concomitant]
     Route: 048
  10. XANAX [Concomitant]
  11. NIFEREX [Concomitant]
     Route: 048
  12. K-DUR [Concomitant]
     Route: 048
  13. FOLIC ACID [Concomitant]
     Route: 048
  14. CALCIUM +D [Concomitant]
     Route: 048
  15. VITAMIN D [Concomitant]

REACTIONS (1)
  - Oedema [Recovered/Resolved]
